FAERS Safety Report 6844744-0 (Version None)
Quarter: 2010Q3

REPORT INFORMATION
  Report Type: 
  Country: None (occurrence: None)
  Receive Date: 20100712
  Receipt Date: 20100706
  Transmission Date: 20110219
  Serious: Yes (Death, Hospitalization, Other)
  Sender: FDA-Public Use
  Company Number: 2009AC000193

PATIENT
  Age: 79 Year
  Sex: Female

DRUGS (38)
  1. DIGOXIN [Suspect]
     Dosage: 0.125 MG;MWF;PO
     Route: 048
     Dates: start: 20060401, end: 20080501
  2. EFFEXOR [Concomitant]
  3. REVATIO [Concomitant]
  4. PEPCID [Concomitant]
  5. ASPIRIN [Concomitant]
  6. LASIX [Concomitant]
  7. ENABLEX [Concomitant]
  8. VERSED [Concomitant]
  9. FENTANYL [Concomitant]
  10. ATENOLOL [Concomitant]
  11. CRESTOR [Concomitant]
  12. ATACAND [Concomitant]
  13. ACIPHEX [Concomitant]
  14. METOCLOPRAMIDE [Concomitant]
  15. POTASSIUM [Concomitant]
  16. AVELOX [Concomitant]
  17. REVATIO [Concomitant]
  18. HEPARIN [Concomitant]
  19. TRACLEER [Concomitant]
  20. VANCOMYCIN [Concomitant]
  21. WARFARIN [Concomitant]
  22. ROXANOL [Concomitant]
  23. ATIVAN [Concomitant]
  24. PROTONIX [Concomitant]
  25. VESICARE [Concomitant]
  26. ROCEPHIN [Concomitant]
  27. VERAPAMIL [Concomitant]
  28. CIPRO [Concomitant]
  29. VYTORIN [Concomitant]
  30. LEVOFLOXACIN [Concomitant]
  31. VENTAVIS [Concomitant]
  32. CANDESARTAN [Concomitant]
  33. VENLAFAXINE HCI [Concomitant]
  34. XOPONEX [Concomitant]
  35. ATROVENT [Concomitant]
  36. ZITHROMAX [Concomitant]
  37. CEFEPIME [Concomitant]
  38. OXYGEN [Concomitant]

REACTIONS (38)
  - AMNESIA [None]
  - ASTHENIA [None]
  - ASTHMA [None]
  - ATROPHY [None]
  - CARDIAC FAILURE [None]
  - CONJUNCTIVITIS [None]
  - COR PULMONALE [None]
  - DEEP VEIN THROMBOSIS [None]
  - DEPRESSION [None]
  - DEVICE MALFUNCTION [None]
  - DIZZINESS [None]
  - ECONOMIC PROBLEM [None]
  - ELECTROCARDIOGRAM ST-T CHANGE [None]
  - EMOTIONAL DISORDER [None]
  - FALL [None]
  - FATIGUE [None]
  - HEPATIC FAILURE [None]
  - LETHARGY [None]
  - LOSS OF CONSCIOUSNESS [None]
  - MENTAL STATUS CHANGES [None]
  - MULTI-ORGAN FAILURE [None]
  - MULTIPLE INJURIES [None]
  - NOCTURIA [None]
  - OEDEMA PERIPHERAL [None]
  - PAIN [None]
  - PLEURAL EFFUSION [None]
  - PNEUMONIA [None]
  - PULMONARY EMBOLISM [None]
  - PULMONARY HYPERTENSION [None]
  - PULMONARY INFARCTION [None]
  - RENAL FAILURE [None]
  - RESPIRATORY FAILURE [None]
  - RIGHT VENTRICULAR FAILURE [None]
  - SEPSIS SYNDROME [None]
  - SOCIAL AVOIDANT BEHAVIOUR [None]
  - SYNCOPE [None]
  - SYSTEMIC INFLAMMATORY RESPONSE SYNDROME [None]
  - URINARY TRACT INFECTION [None]
